FAERS Safety Report 11486795 (Version 2)
Quarter: 2015Q3

REPORT INFORMATION
  Report Type: Spontaneous
  Country: US (occurrence: US)
  Receive Date: 20150910
  Receipt Date: 20150911
  Transmission Date: 20151125
  Serious: No
  Sender: FDA-Public Use
  Company Number: US-PFIZER INC-2015294121

PATIENT
  Age: 58 Year
  Sex: Female

DRUGS (9)
  1. TRENTAL [Concomitant]
     Active Substance: PENTOXIFYLLINE
     Dosage: 400 MG, 3X/DAY (WITH MEALS)
     Route: 048
  2. LASIX [Concomitant]
     Active Substance: FUROSEMIDE
     Dosage: 20 MG, DAILY
     Route: 048
  3. PRILOSEC [Concomitant]
     Active Substance: OMEPRAZOLE MAGNESIUM
     Dosage: 40 MG, DAILY
     Route: 048
  4. REVATIO [Suspect]
     Active Substance: SILDENAFIL CITRATE
     Indication: PULMONARY HYPERTENSION
     Dosage: 20 MG, 3X/DAY
     Route: 048
  5. FLAXSEED [Concomitant]
     Active Substance: FLAX SEED
     Dosage: 1000 MG, DAILY
     Route: 048
  6. PERCOCET [Concomitant]
     Active Substance: ACETAMINOPHEN\OXYCODONE HYDROCHLORIDE
     Dosage: 2 DF, AS NEEDED (OXYCODONE: 5MG  ACETAMINOPHEN 325 MG)
     Route: 048
  7. ASPIRIN. [Concomitant]
     Active Substance: ASPIRIN
     Dosage: 81 MG, DAILY
     Route: 048
  8. CYCLOPHOSPHAMIDE. [Concomitant]
     Active Substance: CYCLOPHOSPHAMIDE
     Dosage: 50 MG, DAILY
     Route: 048
  9. DOLOPHINE [Concomitant]
     Active Substance: METHADONE HYDROCHLORIDE
     Indication: PAIN
     Dosage: 10 MG, AS NEEDED (EVERY 8 HOURS)
     Route: 048

REACTIONS (2)
  - Contraindicated drug administered [Unknown]
  - Hypersensitivity [Unknown]

NARRATIVE: CASE EVENT DATE: 20150827
